FAERS Safety Report 5200549-8 (Version None)
Quarter: 2006Q4

REPORT INFORMATION
  Report Type: 
  Country: None (occurrence: None)
  Receive Date: 20061016
  Receipt Date: 20051206
  Transmission Date: 20070319
  Serious: Yes (Hospitalization)
  Sender: FDA-Public Use
  Company Number: 2005156272

PATIENT
  Age: 63 Year
  Sex: Female
  Weight: 47.6 kg

DRUGS (4)
  1. NEURONTIN [Suspect]
     Indication: HERPES ZOSTER
     Dosage: 200 MG (100 MG,2 IN 1 D), ORAL
     Route: 048
     Dates: start: 20050725
  2. ILOPROST (ILOPROST) [Suspect]
     Indication: PULMONARY HYPERTENSION
     Dosage: 2.5 MCG (1 D), INHALATION
     Route: 055
     Dates: start: 20050714, end: 20050725
  3. ATIVAN [Suspect]
     Indication: SLEEP DISORDER
     Dosage: (AS NEEDED), ORAL
     Route: 048
     Dates: start: 20050701
  4. CIPRO [Concomitant]

REACTIONS (3)
  - ANAEMIA [None]
  - HALLUCINATION [None]
  - PERSONALITY DISORDER [None]
